FAERS Safety Report 13815698 (Version 1)
Quarter: 2017Q3

REPORT INFORMATION
  Report Type: Spontaneous
  Country: US (occurrence: US)
  Receive Date: 20170731
  Receipt Date: 20170731
  Transmission Date: 20171127
  Serious: No
  Sender: FDA-Public Use
  Company Number: US-GLENMARK PHARMACEUTICALS-2016GMK023673

PATIENT

DRUGS (3)
  1. MUPIROCIN. [Suspect]
     Active Substance: MUPIROCIN
     Indication: NASAL DISCOMFORT
     Dosage: UNK, OD (APPLY ONCE DAILY)
     Route: 045
  2. MUPIROCIN. [Suspect]
     Active Substance: MUPIROCIN
     Indication: SWELLING
  3. MUPIROCIN. [Suspect]
     Active Substance: MUPIROCIN
     Indication: SCAB

REACTIONS (3)
  - Incorrect route of drug administration [Unknown]
  - Off label use [Unknown]
  - No adverse event [Unknown]
